FAERS Safety Report 21737483 (Version 1)
Quarter: 2022Q4

REPORT INFORMATION
  Report Type: Spontaneous
  Country: SI (occurrence: SI)
  Receive Date: 20221216
  Receipt Date: 20221216
  Transmission Date: 20230113
  Serious: No
  Sender: FDA-Public Use
  Company Number: SI-PADAGIS-2022PAD00546

PATIENT

DRUGS (1)
  1. IMIQUIMOD [Suspect]
     Active Substance: IMIQUIMOD
     Indication: Lentigo maligna recurrent
     Dosage: 6 DAYS PER WEEK ONCE DAILY, FOLLOWED BY A 1-DAY INTERVAL WITHOUT TREATMENT
     Route: 061

REACTIONS (2)
  - Ulcer [Recovered/Resolved]
  - Product use in unapproved indication [Unknown]
